FAERS Safety Report 18864735 (Version 1)
Quarter: 2021Q1

REPORT INFORMATION
  Report Type: Spontaneous
  Country: US (occurrence: US)
  Receive Date: 20210208
  Receipt Date: 20210208
  Transmission Date: 20210420
  Serious: Yes (Death, Life-Threatening, Hospitalization)
  Sender: FDA-Public Use
  Company Number: None

PATIENT
  Age: 65 Year
  Sex: Male
  Weight: 79.5 kg

DRUGS (3)
  1. SIROLIMUS. [Suspect]
     Active Substance: SIROLIMUS
     Indication: RENAL TRANSPLANT
     Route: 048
     Dates: start: 20210202, end: 20210206
  2. ENVARSUS XR [Suspect]
     Active Substance: TACROLIMUS
     Indication: RENAL TRANSPLANT
     Route: 048
  3. SIROLIMUS 2MG PO BID [Concomitant]
     Dates: start: 20210202, end: 20210206

REACTIONS (3)
  - Pneumonitis [None]
  - Treatment noncompliance [None]
  - Duplicate therapy error [None]

NARRATIVE: CASE EVENT DATE: 20210115
